FAERS Safety Report 16950850 (Version 1)
Quarter: 2019Q4

REPORT INFORMATION
  Report Type: Spontaneous
  Country: US (occurrence: US)
  Receive Date: 20191022
  Receipt Date: 20191022
  Transmission Date: 20200122
  Serious: No
  Sender: FDA-Public Use
  Company Number: None

PATIENT
  Age: 42 Year
  Sex: Female
  Weight: 121.5 kg

DRUGS (9)
  1. FLONASE [Concomitant]
     Active Substance: FLUTICASONE PROPIONATE
  2. SYNTHROID [Concomitant]
     Active Substance: LEVOTHYROXINE SODIUM
  3. MYFORTIC [Concomitant]
     Active Substance: MYCOPHENOLATE SODIUM
  4. ENVARSUS XR [Concomitant]
     Active Substance: TACROLIMUS
  5. GUAIFENESIN AND PSEUDOEPHEDRINE HCL EXTENDED-RELEASE [Suspect]
     Active Substance: GUAIFENESIN\PSEUDOEPHEDRINE HYDROCHLORIDE
     Indication: INFLUENZA
     Dosage: ?          QUANTITY:1 TABLET(S);?
     Route: 048
     Dates: start: 20191020, end: 20191021
  6. INSULIN [Concomitant]
     Active Substance: INSULIN NOS
  7. CONTINUOUS GLUCOSE MONITOR [Concomitant]
  8. MUCINEX [Concomitant]
     Active Substance: GUAIFENESIN
  9. CARVEDILOL. [Concomitant]
     Active Substance: CARVEDILOL

REACTIONS (17)
  - Nausea [None]
  - Near death experience [None]
  - Hypoaesthesia [None]
  - Muscle fatigue [None]
  - Incoherent [None]
  - Feeling abnormal [None]
  - Somnolence [None]
  - Blood pressure increased [None]
  - Vomiting projectile [None]
  - Tinnitus [None]
  - Ear pain [None]
  - Retching [None]
  - Panic attack [None]
  - Eye pain [None]
  - Presyncope [None]
  - Paraesthesia [None]
  - Rash [None]

NARRATIVE: CASE EVENT DATE: 20191021
